FAERS Safety Report 8544238-0 (Version None)
Quarter: 2012Q3

REPORT INFORMATION
  Report Type: 
  Country: None (occurrence: None)
  Receive Date: 20120719
  Receipt Date: 20120719
  Transmission Date: 20120928
  Serious: Yes (Hospitalization)
  Sender: FDA-Public Use
  Company Number: None

PATIENT
  Age: 46 Year
  Sex: Female
  Weight: 64.4108 kg

DRUGS (2)
  1. THERAFLU DAYTIME NOVARTIS [Suspect]
     Indication: NASOPHARYNGITIS
     Dosage: 1 PACKET -DRANK 1/4 TBS  1 TIME
     Dates: start: 20120628, end: 20120628
  2. THERAFLU DAYTIME NOVARTIS [Suspect]
     Indication: RESPIRATORY TRACT CONGESTION
     Dosage: 1 PACKET -DRANK 1/4 TBS  1 TIME
     Dates: start: 20120628, end: 20120628

REACTIONS (12)
  - FLATULENCE [None]
  - DIZZINESS [None]
  - DYSSTASIA [None]
  - FEELING ABNORMAL [None]
  - VOMITING [None]
  - GASTRITIS [None]
  - HEART RATE INCREASED [None]
  - BALANCE DISORDER [None]
  - CHILLS [None]
  - RESPIRATORY RATE INCREASED [None]
  - PRESYNCOPE [None]
  - MALAISE [None]
